FAERS Safety Report 12190566 (Version 1)
Quarter: 2016Q1

REPORT INFORMATION
  Report Type: Spontaneous
  Country: US (occurrence: US)
  Receive Date: 20160318
  Receipt Date: 20160318
  Transmission Date: 20160526
  Serious: Yes (Other)
  Sender: FDA-Public Use
  Company Number: US-PURDUE-USA-2016-0129648

PATIENT
  Age: 64 Year
  Sex: Female

DRUGS (2)
  1. MORPHINE SULFATE (SIMILAR TO NDA 19-516) [Suspect]
     Active Substance: MORPHINE SULFATE
     Indication: ANALGESIC THERAPY
     Dosage: 2X 15 MG, QID
     Route: 048
     Dates: start: 2000
  2. HYDROCODONE W/APAP                 /01554201/ [Suspect]
     Active Substance: ACETAMINOPHEN\HYDROCODONE
     Indication: BREAKTHROUGH PAIN
     Dosage: 2 TABLET,7.5/325 MG,  Q4- 6H PRN
     Route: 048
     Dates: start: 2000

REACTIONS (8)
  - Intentional product use issue [Unknown]
  - Drug dependence [Not Recovered/Not Resolved]
  - Lethargy [Not Recovered/Not Resolved]
  - Feeling abnormal [Unknown]
  - Dyspnoea [Not Recovered/Not Resolved]
  - Nausea [Not Recovered/Not Resolved]
  - Spinal operation [Recovered/Resolved]
  - Amnesia [Not Recovered/Not Resolved]

NARRATIVE: CASE EVENT DATE: 201602
